FAERS Safety Report 9839530 (Version 2)
Quarter: 2014Q1

REPORT INFORMATION
  Report Type: Report from Study
  Country: US (occurrence: US)
  Receive Date: 20140124
  Receipt Date: 20140213
  Transmission Date: 20141002
  Serious: Yes (Other)
  Sender: FDA-Public Use
  Company Number: US-ROCHE-1337579

PATIENT
  Sex: Male

DRUGS (3)
  1. XOLAIR [Suspect]
     Indication: IDIOPATHIC URTICARIA
     Route: 065
  2. XOLAIR [Suspect]
     Indication: PSORIASIS
  3. XOLAIR [Suspect]
     Indication: RHINITIS ALLERGIC

REACTIONS (3)
  - Skin discolouration [Unknown]
  - Skin discolouration [Unknown]
  - Skin ulcer [Unknown]
